FAERS Safety Report 6023638-7 (Version None)
Quarter: 2008Q4

REPORT INFORMATION
  Report Type: 
  Country: None (occurrence: None)
  Receive Date: 20081229
  Receipt Date: 20081229
  Transmission Date: 20090506
  Serious: Yes (Life-Threatening, Hospitalization, Disabling, Other)
  Sender: FDA-Public Use
  Company Number: None

PATIENT
  Age: 48 Year
  Sex: Male
  Weight: 90.7194 kg

DRUGS (3)
  1. TOPAMAX [Suspect]
     Indication: FACIAL PAIN
     Dosage: 10 MG ONCE ONCE A DAY PO
     Route: 048
     Dates: start: 20080401, end: 20081112
  2. TOPAMAX [Suspect]
     Indication: HEADACHE
     Dosage: 10 MG ONCE ONCE A DAY PO
     Route: 048
     Dates: start: 20080401, end: 20081112
  3. TOPAMAX [Suspect]
     Indication: MIGRAINE
     Dosage: 10 MG ONCE ONCE A DAY PO
     Route: 048
     Dates: start: 20080401, end: 20081112

REACTIONS (4)
  - HYDRONEPHROSIS [None]
  - INJURY [None]
  - NEPHROLITHIASIS [None]
  - OPERATIVE HAEMORRHAGE [None]
